FAERS Safety Report 5763965-1 (Version None)
Quarter: 2008Q2

REPORT INFORMATION
  Report Type: 
  Country: None (occurrence: None)
  Receive Date: 20080606
  Receipt Date: 20080606
  Transmission Date: 20081010
  Serious: Yes (Other)
  Sender: FDA-Public Use
  Company Number: None

PATIENT
  Sex: Male

DRUGS (1)
  1. RECTAGEL HC AZUR PHARMA [Suspect]
     Indication: HAEMORRHOIDS

REACTIONS (3)
  - ANAL FISSURE [None]
  - IMPAIRED WORK ABILITY [None]
  - MEDICAL DEVICE COMPLICATION [None]
